FAERS Safety Report 9209456 (Version 1)
Quarter: 2013Q1

REPORT INFORMATION
  Report Type: Spontaneous
  Country: US (occurrence: None)
  Receive Date: 20120730
  Receipt Date: 20120730
  Transmission Date: 20140127
  Serious: Yes (Other)
  Sender: FDA-Public Use
  Company Number: 2012000139

PATIENT
  Age: 7 Year
  Sex: Male

DRUGS (1)
  1. KAPVAY [Suspect]
     Indication: ATTENTION DEFICIT/HYPERACTIVITY DISORDER
     Dates: start: 20120319, end: 20120402

REACTIONS (2)
  - Aggression [None]
  - Insomnia [None]
